FAERS Safety Report 11045157 (Version 2)
Quarter: 2018Q1

REPORT INFORMATION
  Report Type: Spontaneous
  Country: US (occurrence: US)
  Receive Date: 20150417
  Receipt Date: 20180111
  Transmission Date: 20180508
  Serious: Yes (Other)
  Sender: FDA-Public Use
  Company Number: US-JNJFOC-20150413628

PATIENT
  Sex: Male
  Weight: 170.1 kg

DRUGS (1)
  1. REMICADE [Suspect]
     Active Substance: INFLIXIMAB
     Indication: PSORIATIC ARTHROPATHY
     Dosage: STARTED 8-9 YEARS PRIOR TO THE DATE OF THIS REPORT
     Route: 042
     Dates: start: 2008, end: 2008

REACTIONS (5)
  - Adverse event [Unknown]
  - Liver injury [Unknown]
  - Hepatomegaly [Unknown]
  - Subarachnoid haemorrhage [Unknown]
  - Platelet count decreased [Unknown]

NARRATIVE: CASE EVENT DATE: 2008
